FAERS Safety Report 7462174-8 (Version None)
Quarter: 2011Q2

REPORT INFORMATION
  Report Type: 
  Country: None (occurrence: None)
  Receive Date: 20110506
  Receipt Date: 20110303
  Transmission Date: 20111010
  Serious: No
  Sender: FDA-Public Use
  Company Number: US-BAYER-2011-020191

PATIENT
  Sex: Female

DRUGS (1)
  1. AVELOX [Suspect]
     Indication: CYSTITIS
     Dosage: 400 MG, UNK
     Route: 048

REACTIONS (2)
  - VISUAL IMPAIRMENT [None]
  - DYSPEPSIA [None]
